FAERS Safety Report 7672497-5 (Version None)
Quarter: 2011Q3

REPORT INFORMATION
  Report Type: 
  Country: None (occurrence: None)
  Receive Date: 20110803
  Receipt Date: 20110719
  Transmission Date: 20111222
  Serious: Yes (Other)
  Sender: FDA-Public Use
  Company Number: 2011SP033835

PATIENT
  Age: 22 Year
  Sex: Female
  Weight: 71.2147 kg

DRUGS (1)
  1. IMPLANON [Suspect]
     Indication: CONTRACEPTION
     Dates: start: 20110706, end: 20110708

REACTIONS (3)
  - DYSPNOEA [None]
  - URTICARIA [None]
  - HYPERSENSITIVITY [None]
